FAERS Safety Report 5517473-3 (Version None)
Quarter: 2007Q4

REPORT INFORMATION
  Report Type: 
  Country: None (occurrence: None)
  Receive Date: 20071114
  Receipt Date: 20071103
  Transmission Date: 20080405
  Serious: Yes (Other)
  Sender: FDA-Public Use
  Company Number: US-PFIZER INC-2007082439

PATIENT
  Sex: Female
  Weight: 65.8 kg

DRUGS (1)
  1. CHANTIX [Suspect]
     Indication: SMOKING CESSATION THERAPY
     Route: 048
     Dates: start: 20070915, end: 20071019

REACTIONS (6)
  - COUGH [None]
  - GRAND MAL CONVULSION [None]
  - INFLUENZA LIKE ILLNESS [None]
  - MYALGIA [None]
  - PYREXIA [None]
  - VERTIGO POSITIONAL [None]
